FAERS Safety Report 9467769 (Version 1)
Quarter: 2013Q3

REPORT INFORMATION
  Report Type: Spontaneous
  Country: US (occurrence: US)
  Receive Date: 20130821
  Receipt Date: 20130821
  Transmission Date: 20140515
  Serious: No
  Sender: FDA-Public Use
  Company Number: US-US-EMD SERONO, INC.-7231001

PATIENT
  Age: 43 Year
  Sex: Male
  Weight: 64 kg

DRUGS (1)
  1. REBIF [Suspect]
     Indication: MULTIPLE SCLEROSIS
     Route: 058
     Dates: start: 20130805

REACTIONS (3)
  - Cough [Unknown]
  - Influenza like illness [Unknown]
  - Fatigue [Unknown]
